FAERS Safety Report 21605457 (Version 8)
Quarter: 2023Q4

REPORT INFORMATION
  Report Type: Report from Study
  Country: IL (occurrence: IL)
  Receive Date: 20221116
  Receipt Date: 20231005
  Transmission Date: 20240110
  Serious: Yes (Hospitalization)
  Sender: FDA-Public Use
  Company Number: IL-JNJFOC-20221115868

PATIENT
  Age: 47 Year
  Sex: Male
  Weight: 56.4 kg

DRUGS (16)
  1. AMIVANTAMAB [Suspect]
     Active Substance: AMIVANTAMAB
     Indication: Non-small cell lung cancer
     Dosage: 7 ML VIAL
     Route: 042
     Dates: start: 20221030, end: 20221031
  2. ELIQUIS [Concomitant]
     Active Substance: APIXABAN
     Indication: Tumour thrombosis
     Route: 048
     Dates: start: 20210101
  3. METAMIZOLE [Concomitant]
     Active Substance: METAMIZOLE
     Indication: Pulmonary pain
     Route: 048
     Dates: start: 20210601
  4. PERCOCET [Concomitant]
     Active Substance: ACETAMINOPHEN\OXYCODONE HYDROCHLORIDE
     Indication: Pulmonary pain
     Route: 048
     Dates: start: 20210601, end: 20221026
  5. PERCOCET [Concomitant]
     Active Substance: ACETAMINOPHEN\OXYCODONE HYDROCHLORIDE
     Indication: Pelvic pain
     Dosage: PERCOCET-10
     Route: 048
     Dates: start: 20221027
  6. FENTANYL TRANSDERMAL SYSTEM [Concomitant]
     Active Substance: FENTANYL
     Indication: Pulmonary pain
     Route: 062
     Dates: start: 20210601, end: 20221026
  7. FENTANYL TRANSDERMAL SYSTEM [Concomitant]
     Active Substance: FENTANYL
     Route: 062
     Dates: start: 20221027, end: 20230102
  8. OXYCOD [OXYCODONE HYDROCHLORIDE] [Concomitant]
     Indication: Pulmonary pain
     Route: 048
     Dates: start: 20221001
  9. OXYCOD [OXYCODONE HYDROCHLORIDE] [Concomitant]
     Indication: Pelvic pain
  10. V DALGIN [Concomitant]
     Indication: Pulmonary pain
     Route: 048
     Dates: start: 20221114, end: 20221114
  11. HYDROCORTISONE [Concomitant]
     Active Substance: HYDROCORTISONE
     Indication: Infusion related reaction
     Route: 042
     Dates: start: 20221030, end: 20221030
  12. HYDROCORTISONE [Concomitant]
     Active Substance: HYDROCORTISONE
     Indication: Chest discomfort
     Route: 042
     Dates: start: 20221031, end: 20221031
  13. OXYGEN [Concomitant]
     Active Substance: OXYGEN
     Indication: Hypoxia
     Dosage: DOSE: 10 (DOSAGE UNIT NOT REPORTED)
     Route: 055
     Dates: start: 20221030, end: 20221030
  14. OXYGEN [Concomitant]
     Active Substance: OXYGEN
     Indication: Infusion related reaction
  15. LOSEC [Concomitant]
     Active Substance: OMEPRAZOLE
     Indication: Prophylaxis
     Route: 048
     Dates: start: 20221107
  16. MAALOX ANTACID [Concomitant]
     Active Substance: ALUMINUM HYDROXIDE\DIMETHICONE\MAGNESIUM HYDROXIDE
     Indication: Prophylaxis
     Route: 048
     Dates: start: 20221108, end: 20221108

REACTIONS (1)
  - Hepatitis [Recovering/Resolving]

NARRATIVE: CASE EVENT DATE: 20221107
